FAERS Safety Report 9237380 (Version 1)
Quarter: 2013Q2

REPORT INFORMATION
  Report Type: Spontaneous
  Country: FI (occurrence: FI)
  Receive Date: 20130417
  Receipt Date: 20130417
  Transmission Date: 20140414
  Serious: Yes (Other)
  Sender: FDA-Public Use
  Company Number: FI-009507513-1209FIN010040

PATIENT
  Age: 38 Year
  Sex: Female
  Weight: 84 kg

DRUGS (3)
  1. ZOELY [Suspect]
     Indication: CONTRACEPTION
     Dosage: UNK
     Route: 048
     Dates: start: 201205, end: 201207
  2. CERAZETTE [Suspect]
     Indication: CONTRACEPTION
     Dosage: UNK
     Dates: start: 2012, end: 201205
  3. NUVARING [Suspect]
     Indication: CONTRACEPTION
     Dosage: UNK
     Dates: end: 2012

REACTIONS (4)
  - Obstructed labour [Unknown]
  - Haemorrhage [Unknown]
  - Cervix disorder [Unknown]
  - Unintended pregnancy [Recovered/Resolved]
